FAERS Safety Report 5517636-7 (Version None)
Quarter: 2007Q4

REPORT INFORMATION
  Report Type: 
  Country: None (occurrence: None)
  Receive Date: 20071114
  Receipt Date: 20071108
  Transmission Date: 20080405
  Serious: Yes (Other)
  Sender: FDA-Public Use
  Company Number: JP-ROXANE LABORATORIES, INC-2007-BP-24228RO

PATIENT
  Age: 1 Year
  Sex: Female

DRUGS (8)
  1. PREDNISONE TAB [Suspect]
     Indication: IMMUNOSUPPRESSION
  2. TACROLIMUS [Suspect]
     Indication: IMMUNOSUPPRESSION
  3. RITUXIMAB [Suspect]
     Indication: CHEMOTHERAPY
  4. ACYCLOVIR [Concomitant]
     Indication: PROPHYLAXIS
  5. ANTIBIOTICS [Concomitant]
     Indication: EVIDENCE BASED TREATMENT
     Route: 042
  6. GANCICLOVIR [Concomitant]
  7. METHYLPREDNISOLONE [Concomitant]
     Indication: TRANSPLANT REJECTION
  8. CYCLOSPORINE [Concomitant]
     Indication: TRANSPLANT REJECTION

REACTIONS (6)
  - DIFFUSE LARGE B-CELL LYMPHOMA STAGE IV [None]
  - LYMPHOPROLIFERATIVE DISORDER [None]
  - PANCYTOPENIA [None]
  - PERITONITIS [None]
  - TRANSPLANT REJECTION [None]
  - VIRAL DNA TEST POSITIVE [None]
